FAERS Safety Report 5453165-7 (Version None)
Quarter: 2007Q3

REPORT INFORMATION
  Report Type: 
  Country: None (occurrence: None)
  Receive Date: 20070914
  Receipt Date: 20070903
  Transmission Date: 20080115
  Serious: Yes (Hospitalization)
  Sender: FDA-Public Use
  Company Number: ES-PFIZER INC-2007073186

PATIENT
  Sex: Male
  Weight: 65 kg

DRUGS (2)
  1. SU-011,248 [Suspect]
     Indication: NEOPLASM
     Route: 048
  2. PHENYTOIN [Concomitant]

REACTIONS (1)
  - URINARY TRACT INFECTION [None]
